FAERS Safety Report 10662097 (Version 2)
Quarter: 2015Q2

REPORT INFORMATION
  Report Type: Spontaneous
  Country: US (occurrence: US)
  Receive Date: 20141218
  Receipt Date: 20150522
  Transmission Date: 20150821
  Serious: No
  Sender: FDA-Public Use
  Company Number: US-PFIZER INC-2014343370

PATIENT
  Age: 53 Year
  Sex: Female
  Weight: 99 kg

DRUGS (11)
  1. SUTENT [Suspect]
     Active Substance: SUNITINIB MALATE
     Dosage: 37.5 MG, CYCLIC, 3 WEEKS ON AND 2 WEEKS OFF
     Dates: start: 20140901
  2. GLYBURIDE. [Concomitant]
     Active Substance: GLYBURIDE
     Dosage: UNK
  3. LEVOTHYROXINE [Concomitant]
     Active Substance: LEVOTHYROXINE
     Dosage: UNK
  4. METFORMIN [Concomitant]
     Active Substance: METFORMIN HYDROCHLORIDE
     Dosage: UNK
  5. SUTENT [Suspect]
     Active Substance: SUNITINIB MALATE
     Indication: RENAL CANCER
     Dosage: 50 MG, UNK
     Dates: start: 20090310, end: 20091028
  6. SUTENT [Suspect]
     Active Substance: SUNITINIB MALATE
     Dosage: 50 MG, UNK
     Dates: start: 20130102, end: 20140630
  7. STOOL SOFTENER [Concomitant]
     Active Substance: DOCUSATE CALCIUM
     Dosage: UNK
  8. SUTENT [Suspect]
     Active Substance: SUNITINIB MALATE
     Dosage: 50 MG, UNK
     Dates: start: 20101003, end: 20111231
  9. FISH OIL [Concomitant]
     Active Substance: FISH OIL
     Dosage: UNK
     Dates: end: 20150401
  10. SUTENT [Suspect]
     Active Substance: SUNITINIB MALATE
     Dosage: 12.5 MG, 3X/DAY (ON AND OFF)
     Dates: start: 2010
  11. VITAMIN B COMPLEX [Concomitant]
     Active Substance: CYANOCOBALAMIN\DEXPANTHENOL\NIACINAMIDE\PYRIDOXINE HYDROCHLORIDE\RIBOFLAVIN 5^-PHOSPHATE SODIUM\THIAMINE HYDROCHLORIDE\VITAMIN B COMPLEX
     Dosage: UNK
     Dates: end: 20150401

REACTIONS (26)
  - Diarrhoea [Recovered/Resolved]
  - Chromaturia [Unknown]
  - Oral pain [Unknown]
  - Weight decreased [Unknown]
  - Glossodynia [Unknown]
  - Yellow skin [Recovered/Resolved]
  - Palmar-plantar erythrodysaesthesia syndrome [Unknown]
  - Nausea [Recovered/Resolved]
  - Vomiting [Recovered/Resolved]
  - Platelet count decreased [Unknown]
  - Hypotension [Unknown]
  - Salivary hypersecretion [Unknown]
  - Constipation [Recovered/Resolved]
  - Eye colour change [Recovered/Resolved]
  - Dysgeusia [Unknown]
  - Lip blister [Unknown]
  - Dysphagia [Unknown]
  - Asthenia [Unknown]
  - Fatigue [Recovered/Resolved]
  - Amnesia [Unknown]
  - Dry mouth [Unknown]
  - Abdominal pain [Unknown]
  - Tongue blistering [Unknown]
  - Thyroid function test abnormal [Unknown]
  - Chapped lips [Unknown]
  - Oral mucosal blistering [Unknown]
